FAERS Safety Report 25960554 (Version 1)
Quarter: 2025Q4

REPORT INFORMATION
  Report Type: Spontaneous
  Country: EU (occurrence: EU)
  Receive Date: 20251027
  Receipt Date: 20251027
  Transmission Date: 20260118
  Serious: Yes (Hospitalization)
  Sender: JOHNSON AND JOHNSON
  Company Number: None

PATIENT
  Age: 82 Year
  Sex: Male
  Weight: 66 kg

DRUGS (6)
  1. RISPERDAL [Suspect]
     Active Substance: RISPERIDONE
     Indication: Behaviour disorder
     Dosage: 0.25 MG TWICE A DAY UNTIL MAY 9, 2025, THEN 0.25 MG PER DAY ON MAY 10 AND 11, 2025
     Route: 048
     Dates: start: 20250318, end: 20250511
  2. RISPERDAL [Suspect]
     Active Substance: RISPERIDONE
  3. ATORVASTATIN [Suspect]
     Active Substance: ATORVASTATIN
     Indication: Hypercholesterolaemia
     Dosage: 40MG PER DAY IN THE EVENING
     Route: 048
     Dates: start: 20250215, end: 20250508
  4. EZETIMIBE [Suspect]
     Active Substance: EZETIMIBE
     Indication: Hypercholesterolaemia
     Dosage: 10 MG PER DAY IN THE EVENING
     Route: 048
     Dates: start: 20250215, end: 20250508
  5. LEVOFLOXACIN HEMIHYDRATE [Suspect]
     Active Substance: LEVOFLOXACIN
     Indication: Urinary tract infection bacterial
     Dosage: 500MG PER DAY
     Route: 048
     Dates: start: 20250218, end: 20250304
  6. ELIQUIS [Suspect]
     Active Substance: APIXABAN
     Indication: Anticoagulant therapy
     Dosage: 5 MG 2 TIMES A DAY
     Route: 048
     Dates: start: 20250226, end: 20250321

REACTIONS (1)
  - Cholestasis [Recovered/Resolved]

NARRATIVE: CASE EVENT DATE: 20250509
